FAERS Safety Report 6782720-7 (Version None)
Quarter: 2010Q2

REPORT INFORMATION
  Report Type: 
  Country: None (occurrence: None)
  Receive Date: 20100621
  Receipt Date: 20100611
  Transmission Date: 20101027
  Serious: Yes (Other)
  Sender: FDA-Public Use
  Company Number: US-ASTRAZENECA-2010SE27408

PATIENT
  Age: 81 Year
  Sex: Female

DRUGS (5)
  1. FASLODEX [Suspect]
     Indication: BREAST CANCER
     Route: 030
     Dates: start: 20090401
  2. CRESTOR [Concomitant]
  3. SYNTHROID [Concomitant]
  4. BENAZEPRIL HYDROCHLORIDE [Concomitant]
  5. ASPIRIN [Concomitant]

REACTIONS (3)
  - CARBOHYDRATE ANTIGEN 27.29 INCREASED [None]
  - METASTASES TO BONE [None]
  - METASTASES TO SPINE [None]
